FAERS Safety Report 5106720-8 (Version None)
Quarter: 2006Q3

REPORT INFORMATION
  Report Type: 
  Country: None (occurrence: None)
  Receive Date: 20060918
  Receipt Date: 20060825
  Transmission Date: 20061208
  Serious: Yes (Other)
  Sender: FDA-Public Use
  Company Number: US-MERCK-0608USA06168

PATIENT
  Age: 66 Year
  Sex: Female
  Weight: 50 kg

DRUGS (5)
  1. ZETIA [Suspect]
     Indication: BLOOD CHOLESTEROL INCREASED
     Route: 048
     Dates: start: 20060823, end: 20060823
  2. ALLEGRA-D 12 HOUR [Concomitant]
     Indication: HYPERSENSITIVITY
     Route: 048
  3. CALCIUM (UNSPECIFIED) AND VITAMIN D (UNSPECIFIED) [Concomitant]
     Indication: OSTEOPOROSIS
     Route: 048
  4. AMBIEN [Concomitant]
     Indication: INSOMNIA
     Route: 048
  5. VITAMINS (UNSPECIFIED) [Concomitant]
     Route: 048

REACTIONS (4)
  - ASTHENIA [None]
  - DIZZINESS [None]
  - LYMPHADENOPATHY [None]
  - SWOLLEN TONGUE [None]
